FAERS Safety Report 7453742-8 (Version None)
Quarter: 2011Q2

REPORT INFORMATION
  Report Type: 
  Country: None (occurrence: None)
  Receive Date: 20110502
  Receipt Date: 20110114
  Transmission Date: 20111010
  Serious: No
  Sender: FDA-Public Use
  Company Number: US-ASTRAZENECA-2011SE02660

PATIENT
  Sex: Female

DRUGS (4)
  1. POTASSIUM [Concomitant]
  2. WATER PILLS [Concomitant]
  3. NEXIUM [Suspect]
     Indication: ULCER
     Route: 048
  4. NEXIUM [Suspect]
     Route: 048

REACTIONS (4)
  - ASTHENIA [None]
  - CONDITION AGGRAVATED [None]
  - ABDOMINAL DISTENSION [None]
  - DISCOMFORT [None]
